FAERS Safety Report 8174541-8 (Version None)
Quarter: 2012Q1

REPORT INFORMATION
  Report Type: 
  Country: None (occurrence: None)
  Receive Date: 20120229
  Receipt Date: 20120223
  Transmission Date: 20120608
  Serious: Yes (Other)
  Sender: FDA-Public Use
  Company Number: US-PFIZER INC-2012048712

PATIENT
  Sex: Female
  Weight: 56.689 kg

DRUGS (14)
  1. DIOVAN [Concomitant]
     Dosage: UNK
  2. REVATIO [Suspect]
     Indication: CARDIAC DISORDER
     Dosage: 10 MG, 2X/DAY
     Route: 048
     Dates: start: 20111201, end: 20120101
  3. PROTONIX [Concomitant]
     Dosage: UNK
  4. POTASSIUM [Concomitant]
     Dosage: UNK
  5. MAGNESIUM OXIDE [Concomitant]
     Dosage: UNK
  6. REVATIO [Suspect]
     Dosage: 10 MG, 3X/DAY
     Dates: start: 20120101
  7. COREG [Concomitant]
     Dosage: UNK
  8. LASIX [Concomitant]
     Dosage: UNK
  9. REVATIO [Suspect]
     Indication: DYSPNOEA
     Dosage: 20 MG, 2X/DAY
     Route: 048
     Dates: start: 20111101, end: 20111121
  10. COUMADIN [Concomitant]
     Dosage: UNK
  11. ACETYLSALICYLIC ACID [Concomitant]
     Dosage: UNK, 1X/DAY
  12. AMIODARONE [Concomitant]
     Dosage: UNK
  13. LIPITOR [Concomitant]
     Dosage: UNK
  14. IRON [Concomitant]
     Dosage: UNK

REACTIONS (4)
  - INSOMNIA [None]
  - CONFUSIONAL STATE [None]
  - EYE DISORDER [None]
  - HEADACHE [None]
